FAERS Safety Report 22601718 (Version 2)
Quarter: 2024Q2

REPORT INFORMATION
  Report Type: Spontaneous
  Country: IE (occurrence: IE)
  Receive Date: 20230614
  Receipt Date: 20240425
  Transmission Date: 20240715
  Serious: Yes (Death, Other)
  Sender: FDA-Public Use
  Company Number: IE-ADMA BIOLOGICS INC.-IE-2023ADM000115

PATIENT

DRUGS (1)
  1. HUMAN IMMUNOGLOBULIN G [Suspect]
     Active Substance: HUMAN IMMUNOGLOBULIN G
     Indication: Congenital abnormality prophylaxis
     Dosage: UNK

REACTIONS (3)
  - Pulmonary hypoplasia [Fatal]
  - Maternal exposure during pregnancy [Unknown]
  - Off label use [Unknown]
